FAERS Safety Report 23947111 (Version 1)
Quarter: 2024Q2

REPORT INFORMATION
  Report Type: Spontaneous
  Country: US (occurrence: US)
  Receive Date: 20240606
  Receipt Date: 20240606
  Transmission Date: 20240715
  Serious: No
  Sender: FDA-Public Use
  Company Number: US-PFIZER INC-PV202400073406

PATIENT
  Age: 62 Year
  Sex: Female

DRUGS (1)
  1. ZAVZPRET [Suspect]
     Active Substance: ZAVEGEPANT HYDROCHLORIDE

REACTIONS (4)
  - Drug ineffective [Unknown]
  - Nausea [Unknown]
  - Dysgeusia [Unknown]
  - Somnolence [Unknown]
